FAERS Safety Report 4494396-2 (Version None)
Quarter: 2004Q4

REPORT INFORMATION
  Report Type: 
  Country: None (occurrence: None)
  Receive Date: 20041102
  Receipt Date: 20041020
  Transmission Date: 20050328
  Serious: Yes (Life-Threatening)
  Sender: FDA-Public Use
  Company Number: JP_041004916

PATIENT
  Age: 68 Year
  Sex: Female

DRUGS (5)
  1. VANCOMYCIN [Suspect]
     Indication: SEPSIS
     Dosage: 1000 MG DAY
     Dates: start: 20041006, end: 20041015
  2. CARBENIN [Concomitant]
  3. MINOCYCLINE HCL [Concomitant]
  4. QUINAPRIL HCL [Concomitant]
  5. DOXAZOSIN MESYLATE [Concomitant]

REACTIONS (1)
  - PANCYTOPENIA [None]
